FAERS Safety Report 16986987 (Version 1)
Quarter: 2019Q4

REPORT INFORMATION
  Report Type: Spontaneous
  Country: US (occurrence: US)
  Receive Date: 20191015
  Receipt Date: 20191015
  Transmission Date: 20200122
  Serious: Yes (Disabling)
  Sender: FDA-Public Use
  Company Number: None

PATIENT
  Age: 36 Year
  Sex: Female
  Weight: 62.6 kg

DRUGS (1)
  1. ALDOMET [Suspect]
     Active Substance: METHYLDOPA

REACTIONS (3)
  - Maternal exposure during pregnancy [None]
  - Crohn^s disease [None]
  - Foetal exposure during pregnancy [None]

NARRATIVE: CASE EVENT DATE: 20170206
